FAERS Safety Report 9123989 (Version 1)
Quarter: 2013Q1

REPORT INFORMATION
  Report Type: Spontaneous
  Country: US (occurrence: US)
  Receive Date: 20130227
  Receipt Date: 20130227
  Transmission Date: 20140127
  Serious: No
  Sender: FDA-Public Use
  Company Number: US-009507513-1211USA001131

PATIENT
  Sex: Male
  Weight: 81.63 kg

DRUGS (1)
  1. AFRIN NO DRIP SINUS [Suspect]
     Indication: HYPERSENSITIVITY
     Dosage: UNK, Q 3-4 HOURS
     Route: 045

REACTIONS (3)
  - Incorrect drug administration duration [Unknown]
  - Drug administration error [Unknown]
  - Inappropriate schedule of drug administration [Unknown]
